FAERS Safety Report 9011072 (Version 1)
Quarter: 2013Q1

REPORT INFORMATION
  Report Type: Spontaneous
  Country: US (occurrence: US)
  Receive Date: 20130109
  Receipt Date: 20130109
  Transmission Date: 20140127
  Serious: Yes (Other)
  Sender: FDA-Public Use
  Company Number: US-PURDUE-USA-2013-0097399

PATIENT
  Age: 52 Year
  Sex: Male

DRUGS (10)
  1. OXYCONTIN (NDA 22-272) [Suspect]
     Indication: NECK PAIN
     Dosage: 800 MG, DAILY
     Route: 048
     Dates: end: 201212
  2. OXYCODONE HCL [Suspect]
     Indication: BREAKTHROUGH PAIN
     Dosage: 30 MG, Q4H
     Route: 048
     Dates: end: 201212
  3. NORCO [Concomitant]
     Indication: PRODUCT USED FOR UNKNOWN INDICATION
  4. PERCOCET                           /00867901/ [Concomitant]
     Indication: PRODUCT USED FOR UNKNOWN INDICATION
  5. AMBIEN [Concomitant]
     Indication: PRODUCT USED FOR UNKNOWN INDICATION
  6. DIAZEPAM [Concomitant]
     Indication: PRODUCT USED FOR UNKNOWN INDICATION
  7. HYDROCODONE                        /00060002/ [Concomitant]
     Indication: PRODUCT USED FOR UNKNOWN INDICATION
  8. MISOPROSTOL [Concomitant]
     Indication: PRODUCT USED FOR UNKNOWN INDICATION
  9. OMEPRAZOLE [Concomitant]
     Indication: PRODUCT USED FOR UNKNOWN INDICATION
  10. METHADONE [Concomitant]
     Indication: PRODUCT USED FOR UNKNOWN INDICATION

REACTIONS (8)
  - Suicidal ideation [Unknown]
  - Drug withdrawal syndrome [Unknown]
  - Abasia [Unknown]
  - Abdominal distension [Unknown]
  - Bone pain [Unknown]
  - Unevaluable event [Unknown]
  - Headache [Unknown]
  - Abdominal discomfort [Unknown]
